FAERS Safety Report 12875318 (Version 3)
Quarter: 2016Q4

REPORT INFORMATION
  Report Type: Spontaneous
  Country: BR (occurrence: BR)
  Receive Date: 20161024
  Receipt Date: 20161209
  Transmission Date: 20170207
  Serious: Yes (Other)
  Sender: FDA-Public Use
  Company Number: BR-ROCHE-1844146

PATIENT
  Sex: Female

DRUGS (4)
  1. LEXOTAN [Suspect]
     Active Substance: BROMAZEPAM
     Route: 065
     Dates: end: 2007
  2. LEXOTAN [Suspect]
     Active Substance: BROMAZEPAM
     Indication: ANXIETY
     Route: 065
     Dates: start: 2010
  3. RIVOTRIL [Suspect]
     Active Substance: CLONAZEPAM
     Route: 065
     Dates: start: 2009
  4. RIVOTRIL [Suspect]
     Active Substance: CLONAZEPAM
     Indication: PANIC DISORDER
     Dosage: AS REQUIRED
     Route: 065
     Dates: start: 2014

REACTIONS (16)
  - Blindness [Not Recovered/Not Resolved]
  - Memory impairment [Unknown]
  - Personality disorder [Recovered/Resolved]
  - Panic disorder [Recovered/Resolved]
  - Nausea [Unknown]
  - Violence-related symptom [Recovered/Resolved]
  - Drug ineffective [Unknown]
  - Pharyngitis [Recovered/Resolved]
  - Sluggishness [Not Recovered/Not Resolved]
  - Dyspnoea [Not Recovered/Not Resolved]
  - Aggression [Recovered/Resolved]
  - Fatigue [Unknown]
  - Blood pressure decreased [Not Recovered/Not Resolved]
  - Cerebral infarction [Unknown]
  - Hypertension [Not Recovered/Not Resolved]
  - Phobia [Recovered/Resolved]

NARRATIVE: CASE EVENT DATE: 2015
